FAERS Safety Report 5149036-6 (Version None)
Quarter: 2006Q4

REPORT INFORMATION
  Report Type: 
  Country: None (occurrence: None)
  Receive Date: 20061108
  Receipt Date: 20061027
  Transmission Date: 20070319
  Serious: Yes (Death, Hospitalization)
  Sender: FDA-Public Use
  Company Number: I03-341-060

PATIENT
  Age: 81 Year
  Sex: Male
  Weight: 85 kg

DRUGS (4)
  1. VELCADE [Suspect]
     Indication: PANCREATIC CARCINOMA METASTATIC
     Dosage: 1.0 MG/M2, IV BOLUS
     Route: 040
     Dates: start: 20030530, end: 20030602
  2. GEMCITABINE [Concomitant]
  3. TYLENOL [Concomitant]
  4. DARVOCET [Concomitant]

REACTIONS (5)
  - CEREBRAL ISCHAEMIA [None]
  - CEREBROVASCULAR ACCIDENT [None]
  - HYPERCOAGULATION [None]
  - PLATELET COUNT DECREASED [None]
  - PNEUMONIA ASPIRATION [None]
